FAERS Safety Report 7090131-2 (Version None)
Quarter: 2010Q4

REPORT INFORMATION
  Report Type: 
  Country: None (occurrence: None)
  Receive Date: 20101105
  Receipt Date: 20101105
  Transmission Date: 20110411
  Serious: Yes (Other)
  Sender: FDA-Public Use
  Company Number: None

PATIENT
  Age: 65 Year
  Sex: Female
  Weight: 86.1834 kg

DRUGS (1)
  1. EQUATE MATURE COMPLETE MULTIVITAMIN (WALMART EQUAL TO CENTRUM SILVER C [Suspect]
     Indication: VITAMIN SUPPLEMENTATION
     Dosage: 1 TABLET DAILY ORAL
     Route: 048
     Dates: start: 20100813, end: 20101005

REACTIONS (2)
  - INTERNATIONAL NORMALISED RATIO DECREASED [None]
  - PRODUCT FORMULATION ISSUE [None]
